FAERS Safety Report 9482357 (Version 1)
Quarter: 2013Q3

REPORT INFORMATION
  Report Type: Spontaneous
  Country: US (occurrence: US)
  Receive Date: 20130828
  Receipt Date: 20130828
  Transmission Date: 20140515
  Serious: Yes (Other)
  Sender: FDA-Public Use
  Company Number: US-FRI-1000048112

PATIENT
  Age: 64 Year
  Sex: Female
  Weight: 110.7 kg

DRUGS (6)
  1. LINZESS [Suspect]
     Indication: IRRITABLE BOWEL SYNDROME
     Dosage: 145 MCG
     Route: 048
     Dates: start: 20130625, end: 201308
  2. LINZESS [Suspect]
     Indication: IRRITABLE BOWEL SYNDROME
     Dosage: 145 MCG EVERY OTHER DAY
     Route: 048
     Dates: start: 201308, end: 201308
  3. LINZESS [Suspect]
     Dosage: 145 MCG TWICE PER WEEK
     Route: 048
     Dates: start: 201308
  4. CARTIA XT [Concomitant]
     Indication: HYPERTENSION
  5. TRIAMTERENE [Concomitant]
  6. SIMVASTATIN [Concomitant]
     Indication: BLOOD CHOLESTEROL INCREASED

REACTIONS (3)
  - Weight decreased [Not Recovered/Not Resolved]
  - Diarrhoea [Not Recovered/Not Resolved]
  - Nephrolithiasis [Recovered/Resolved]
